FAERS Safety Report 17649110 (Version 1)
Quarter: 2020Q2

REPORT INFORMATION
  Report Type: Spontaneous
  Country: CA (occurrence: CA)
  Receive Date: 20200408
  Receipt Date: 20200408
  Transmission Date: 20200713
  Serious: Yes (Other)
  Sender: FDA-Public Use
  Company Number: CA-SAMSUNG BIOEPIS-SB-2019-27225

PATIENT
  Age: 31 Year
  Sex: Male
  Weight: 90 kg

DRUGS (3)
  1. ASACOL [Suspect]
     Active Substance: MESALAMINE
     Indication: PRODUCT USED FOR UNKNOWN INDICATION
     Dosage: UNKNOWN (ENTERIC COATED TABLET)
     Route: 065
  2. ASACOL [Suspect]
     Active Substance: MESALAMINE
     Indication: COLITIS ULCERATIVE
  3. INFLIXIMAB [Suspect]
     Active Substance: INFLIXIMAB
     Indication: COLITIS ULCERATIVE
     Route: 042

REACTIONS (8)
  - Body temperature fluctuation [Recovered/Resolved]
  - Weight increased [Recovered/Resolved]
  - Drug ineffective [Recovered/Resolved]
  - Product use issue [Recovered/Resolved]
  - Weight decreased [Recovered/Resolved]
  - Off label use [Recovered/Resolved]
  - Heart rate irregular [Recovered/Resolved]
  - Overdose [Recovered/Resolved]
